FAERS Safety Report 10223804 (Version 3)
Quarter: 2015Q2

REPORT INFORMATION
  Report Type: Spontaneous
  Country: AU (occurrence: AU)
  Receive Date: 20140609
  Receipt Date: 20150626
  Transmission Date: 20150821
  Serious: Yes (Hospitalization)
  Sender: FDA-Public Use
  Company Number: AU-UCBSA-123036

PATIENT
  Age: 71 Year
  Sex: Male

DRUGS (8)
  1. KEPPRA [Suspect]
     Active Substance: LEVETIRACETAM
     Dosage: 1 G, 2X/DAY (BID)
  2. METFORMIN [Suspect]
     Active Substance: METFORMIN HYDROCHLORIDE
     Dosage: 1 G, 2X/DAY (BID)
  3. VERAPAMIL [Suspect]
     Active Substance: VERAPAMIL HYDROCHLORIDE
  4. BYETTA [Suspect]
     Active Substance: EXENATIDE
     Indication: TYPE 2 DIABETES MELLITUS
     Dosage: 10 ?G, 2X/DAY (BID)
     Route: 058
  5. XARELTO [Suspect]
     Active Substance: RIVAROXABAN
     Indication: ATRIAL FIBRILLATION
     Dosage: 20 MG, ONCE DAILY (QD)
  6. GLICLAZIDE [Suspect]
     Active Substance: GLICLAZIDE
     Dosage: 60 MG, 2X/DAY (BID)
  7. OLMETEC [Suspect]
     Active Substance: OLMESARTAN MEDOXOMIL
  8. WARFARIN [Concomitant]
     Active Substance: WARFARIN
     Dosage: UNK

REACTIONS (1)
  - Glycosylated haemoglobin increased [Unknown]
